APPROVED DRUG PRODUCT: HEPATOLITE
Active Ingredient: TECHNETIUM TC-99M DISOFENIN KIT
Strength: N/A
Dosage Form/Route: INJECTABLE;INJECTION
Application: N018467 | Product #001
Applicant: SUN PHARMACEUTICAL INDUSTRIES INC
Approved: Mar 16, 1982 | RLD: No | RS: No | Type: DISCN